FAERS Safety Report 9580728 (Version 2)
Quarter: 2013Q4

REPORT INFORMATION
  Report Type: Spontaneous
  Country: US (occurrence: US)
  Receive Date: 20131002
  Receipt Date: 20131018
  Transmission Date: 20140711
  Serious: Yes (Other)
  Sender: FDA-Public Use
  Company Number: US-BAYER-2013-118733

PATIENT
  Sex: 0

DRUGS (1)
  1. EOVIST [Suspect]
     Dosage: UNK
     Dates: start: 201309, end: 201309

REACTIONS (1)
  - Contrast media reaction [None]
